FAERS Safety Report 6552710-8 (Version None)
Quarter: 2010Q1

REPORT INFORMATION
  Report Type: 
  Country: None (occurrence: None)
  Receive Date: 20100126
  Receipt Date: 20100114
  Transmission Date: 20100710
  Serious: Yes (Hospitalization)
  Sender: FDA-Public Use
  Company Number: MX-ELI_LILLY_AND_COMPANY-MX201001000802

PATIENT
  Age: 57 Year
  Sex: Female
  Weight: 75 kg

DRUGS (6)
  1. FORTEO [Suspect]
     Indication: OSTEOPOROSIS
     Dosage: 20 UG, DAILY (1/D)
     Route: 058
     Dates: start: 20090701
  2. CALCIUM [Concomitant]
     Indication: OSTEOPOROSIS
     Dosage: UNK, DAILY (1/D)
     Route: 065
     Dates: start: 20090701
  3. VITAMIN D [Concomitant]
     Indication: OSTEOPOROSIS
     Dosage: UNK, DAILY (1/D)
     Route: 065
     Dates: start: 20090701
  4. INHIBITRON [Concomitant]
     Dosage: UNK, 2/D
     Route: 065
     Dates: start: 20091001
  5. LIBERTRIM [Concomitant]
     Dosage: UNK, 2/D
     Route: 065
     Dates: start: 20091001
  6. PEPSANE [Concomitant]
     Dosage: UNK, 3/D
     Route: 065
     Dates: start: 20091001

REACTIONS (1)
  - HIATUS HERNIA [None]
